FAERS Safety Report 24975861 (Version 1)
Quarter: 2025Q1

REPORT INFORMATION
  Report Type: Spontaneous
  Country: PK (occurrence: PK)
  Receive Date: 20250217
  Receipt Date: 20250217
  Transmission Date: 20250409
  Serious: Yes (Life-Threatening, Hospitalization)
  Sender: ROCHE
  Company Number: PK-ROCHE-10000207990

PATIENT
  Age: 7 Year
  Sex: Female

DRUGS (2)
  1. RITUXIMAB [Suspect]
     Active Substance: RITUXIMAB
     Indication: Nephrotic syndrome
     Route: 040
     Dates: start: 20250210, end: 20250210
  2. RITUXIMAB [Suspect]
     Active Substance: RITUXIMAB
     Indication: Anaemia

REACTIONS (5)
  - Infusion related reaction [Recovered/Resolved]
  - Off label use [Unknown]
  - Chills [Recovered/Resolved]
  - Eyelid retraction [Recovered/Resolved]
  - Diarrhoea [Recovered/Resolved]

NARRATIVE: CASE EVENT DATE: 20250210
